FAERS Safety Report 5928887-1 (Version None)
Quarter: 2008Q4

REPORT INFORMATION
  Report Type: 
  Country: None (occurrence: None)
  Receive Date: 20081024
  Receipt Date: 20080311
  Transmission Date: 20090506
  Serious: No
  Sender: FDA-Public Use
  Company Number: US-BAYER-200716647NA

PATIENT
  Age: 51 Year
  Sex: Male

DRUGS (3)
  1. NEXAVAR [Suspect]
     Indication: HEPATIC NEOPLASM MALIGNANT
     Dosage: TOTAL DAILY DOSE: 400 MG  UNIT DOSE: 200 MG
     Route: 048
     Dates: start: 20071101
  2. NEXAVAR [Suspect]
     Dosage: TOTAL DAILY DOSE: 400 MG  UNIT DOSE: 200 MG
     Route: 048
  3. NEXAVAR [Suspect]
     Dosage: TOTAL DAILY DOSE: 600 MG  UNIT DOSE: 200 MG
     Route: 048

REACTIONS (21)
  - ABDOMINAL DISCOMFORT [None]
  - ABDOMINAL PAIN [None]
  - ANORECTAL DISCOMFORT [None]
  - ARTHRALGIA [None]
  - BALANCE DISORDER [None]
  - BLISTER [None]
  - CHEST DISCOMFORT [None]
  - CHEST PAIN [None]
  - COORDINATION ABNORMAL [None]
  - DYSPHONIA [None]
  - ERYTHEMA [None]
  - HYPERAESTHESIA [None]
  - MENTAL IMPAIRMENT [None]
  - MOUTH ULCERATION [None]
  - MYALGIA [None]
  - PAIN IN EXTREMITY [None]
  - PALMAR-PLANTAR ERYTHRODYSAESTHESIA SYNDROME [None]
  - PAROSMIA [None]
  - RASH ERYTHEMATOUS [None]
  - RECTAL DISCHARGE [None]
  - SKIN EXFOLIATION [None]
